FAERS Safety Report 8780235 (Version 1)
Quarter: 2012Q4

REPORT INFORMATION
  Report Type: Spontaneous
  Country: US (occurrence: None)
  Receive Date: 20120904
  Receipt Date: 20120904
  Transmission Date: 20130627
  Serious: Yes (Hospitalization)
  Sender: FDA-Public Use
  Company Number: None

PATIENT
  Age: 84 Year
  Sex: Male
  Weight: 76.3 kg

DRUGS (2)
  1. ALPRAZOLAM [Suspect]
     Route: 048
     Dates: start: 20120412, end: 20120617
  2. DULOXETINE [Suspect]
     Route: 048
     Dates: start: 20120126, end: 20120617

REACTIONS (3)
  - Serotonin syndrome [None]
  - Haemorrhage intracranial [None]
  - Drug withdrawal syndrome [None]
